FAERS Safety Report 17125495 (Version 2)
Quarter: 2019Q4

REPORT INFORMATION
  Report Type: Spontaneous
  Country: IL (occurrence: IL)
  Receive Date: 20191207
  Receipt Date: 20191227
  Transmission Date: 20200122
  Serious: Yes (Other)
  Sender: FDA-Public Use
  Company Number: IL-CELLTRION INC.-2019IL027016

PATIENT

DRUGS (3)
  1. REMSIMA [Suspect]
     Active Substance: INFLIXIMAB
     Indication: RHEUMATOID ARTHRITIS
     Dosage: 8 MG/KG (1ST INFUSION)
  2. REMSIMA [Suspect]
     Active Substance: INFLIXIMAB
     Dosage: 8 MG/KG (2ND INFUSION)
  3. ACTEMRA [Concomitant]
     Active Substance: TOCILIZUMAB

REACTIONS (2)
  - Raynaud^s phenomenon [Recovering/Resolving]
  - Overdose [Unknown]
